FAERS Safety Report 22397395 (Version 2)
Quarter: 2023Q2

REPORT INFORMATION
  Report Type: Spontaneous
  Country: IL (occurrence: IL)
  Receive Date: 20230602
  Receipt Date: 20230622
  Transmission Date: 20230722
  Serious: Yes (Hospitalization, Other)
  Sender: FDA-Public Use
  Company Number: IL-CELLTRION INC.-2023IL011226

PATIENT

DRUGS (1)
  1. INFLIXIMAB [Suspect]
     Active Substance: INFLIXIMAB
     Indication: Product used for unknown indication
     Dosage: 120MG/ML ONCE IN 2 WEEKS
     Route: 058
     Dates: start: 20230425

REACTIONS (3)
  - Back pain [Unknown]
  - Inflammation [Unknown]
  - Drug ineffective [Unknown]
